FAERS Safety Report 14519420 (Version 1)
Quarter: 2018Q1

REPORT INFORMATION
  Report Type: Spontaneous
  Country: US (occurrence: US)
  Receive Date: 20180209
  Receipt Date: 20180209
  Transmission Date: 20180509
  Serious: Yes (Other)
  Sender: FDA-Public Use
  Company Number: None

PATIENT
  Age: 26 Year
  Sex: Female
  Weight: 81.45 kg

DRUGS (4)
  1. METHADONE [Concomitant]
     Active Substance: METHADONE HYDROCHLORIDE
  2. PRENATAL VITAMIN [Concomitant]
     Active Substance: VITAMINS
  3. CIPROFLOXACIN HCL 500 MG TAB [Suspect]
     Active Substance: CIPROFLOXACIN HYDROCHLORIDE
     Indication: URINARY TRACT INFECTION
     Dosage: ?          QUANTITY:10 TABLET(S);?
     Route: 048
     Dates: start: 20180130, end: 20180204
  4. EMERGEN-C [Concomitant]
     Active Substance: VITAMINS

REACTIONS (9)
  - Fatigue [None]
  - Sensory loss [None]
  - Somnolence [None]
  - Depressed level of consciousness [None]
  - Disorientation [None]
  - Arthralgia [None]
  - Anxiety [None]
  - Myalgia [None]
  - Vision blurred [None]

NARRATIVE: CASE EVENT DATE: 20180130
